FAERS Safety Report 6827552-6 (Version None)
Quarter: 2010Q3

REPORT INFORMATION
  Report Type: 
  Country: None (occurrence: None)
  Receive Date: 20100709
  Receipt Date: 20100629
  Transmission Date: 20110219
  Serious: Yes (Hospitalization)
  Sender: FDA-Public Use
  Company Number: CA-ABBOTT-10P-028-0654882-00

PATIENT
  Sex: Male
  Weight: 88.984 kg

DRUGS (13)
  1. HUMIRA [Suspect]
     Indication: RHEUMATOID ARTHRITIS
     Route: 058
     Dates: start: 20060515
  2. METHOTREXATE [Concomitant]
     Indication: PRODUCT USED FOR UNKNOWN INDICATION
     Dosage: FOUR 2.5MG TABLETS PER WEEK
     Route: 048
  3. CELEBREX [Concomitant]
     Indication: PRODUCT USED FOR UNKNOWN INDICATION
     Route: 048
  4. LIPITOR [Concomitant]
     Indication: PRODUCT USED FOR UNKNOWN INDICATION
     Route: 048
  5. LANOXIN [Concomitant]
     Indication: PRODUCT USED FOR UNKNOWN INDICATION
     Route: 048
  6. ASPIRIN [Concomitant]
     Indication: CARDIAC DISORDER
     Route: 048
  7. TYLENOL W/ CODEINE NO. 3 [Concomitant]
     Indication: PAIN
     Route: 048
  8. TYLENOL (CAPLET) [Concomitant]
     Indication: PAIN
     Route: 048
  9. TYLENOL ARTHRITIC [Concomitant]
     Indication: PAIN
     Route: 048
  10. FOLIC ACID [Concomitant]
     Indication: PRODUCT USED FOR UNKNOWN INDICATION
     Route: 048
  11. MULTI-VITAMIN [Concomitant]
     Indication: VITAMIN SUPPLEMENTATION
     Route: 048
  12. OXYCET [Concomitant]
     Indication: PAIN
     Route: 048
  13. IRON PILL [Concomitant]
     Indication: MINERAL SUPPLEMENTATION
     Route: 048

REACTIONS (5)
  - ABDOMINAL PAIN UPPER [None]
  - DIVERTICULITIS [None]
  - LARGE INTESTINE PERFORATION [None]
  - PROCEDURAL PAIN [None]
  - WEIGHT DECREASED [None]
